FAERS Safety Report 10068392 (Version 1)
Quarter: 2014Q2

REPORT INFORMATION
  Report Type: Spontaneous
  Country: GB (occurrence: GB)
  Receive Date: 20140409
  Receipt Date: 20140409
  Transmission Date: 20141212
  Serious: Yes (Life-Threatening, Hospitalization, Other)
  Sender: FDA-Public Use
  Company Number: GB-ACTAVIS-2014-06537

PATIENT
  Age: 55 Year
  Sex: Male

DRUGS (3)
  1. DICLOFENAC (UNKNOWN) [Suspect]
     Indication: INTENTIONAL OVERDOSE
     Dosage: 11900 MG, SINGLE
     Route: 048
  2. PARACETAMOL [Suspect]
     Indication: INTENTIONAL OVERDOSE
     Dosage: 24000 MG, SINGLE
     Route: 048
  3. DIHYDROCODEINE [Suspect]
     Indication: INTENTIONAL OVERDOSE
     Dosage: 4800 MG, SINGLE
     Route: 048

REACTIONS (8)
  - Large intestine perforation [Recovered/Resolved]
  - Coma [Recovered/Resolved]
  - Pneumoperitoneum [Recovered/Resolved]
  - Intentional overdose [Recovered/Resolved]
  - Respiratory depression [Recovered/Resolved]
  - Platelet count abnormal [Unknown]
  - Oesophagitis [Recovered/Resolved]
  - Erosive duodenitis [Recovered/Resolved]
